FAERS Safety Report 21862523 (Version 1)
Quarter: 2023Q1

REPORT INFORMATION
  Report Type: Report from Study
  Country: US (occurrence: US)
  Receive Date: 20230114
  Receipt Date: 20230114
  Transmission Date: 20230417
  Serious: No
  Sender: FDA-Public Use
  Company Number: US-ABBVIE-22K-163-4512236-00

PATIENT
  Sex: Female

DRUGS (1)
  1. SKYRIZI [Suspect]
     Active Substance: RISANKIZUMAB-RZAA
     Indication: Psoriasis
     Route: 058

REACTIONS (5)
  - Pruritus [Unknown]
  - Nasopharyngitis [Recovering/Resolving]
  - Skin fissures [Unknown]
  - Burning sensation [Unknown]
  - Therapeutic product effect incomplete [Not Recovered/Not Resolved]
